FAERS Safety Report 4970574-0 (Version None)
Quarter: 2006Q2

REPORT INFORMATION
  Report Type: 
  Country: None (occurrence: None)
  Receive Date: 20060412
  Receipt Date: 20051212
  Transmission Date: 20061013
  Serious: Yes (Hospitalization)
  Sender: FDA-Public Use
  Company Number: US-MERCK-0512USA02144

PATIENT
  Age: 73 Year
  Sex: Female

DRUGS (4)
  1. VIOXX [Suspect]
     Indication: RHEUMATOID ARTHRITIS
     Route: 048
     Dates: start: 20000330, end: 20040831
  2. PREDNISONE [Concomitant]
     Indication: ARTHRITIS
     Route: 065
  3. FOLIC ACID [Concomitant]
     Indication: ARTHRITIS
     Route: 065
  4. METHOTREXATE [Concomitant]
     Indication: ARTHRITIS
     Route: 065

REACTIONS (5)
  - ARTHROPATHY [None]
  - CEREBROVASCULAR ACCIDENT [None]
  - FALL [None]
  - HYPERTENSION [None]
  - TRANSIENT ISCHAEMIC ATTACK [None]
